FAERS Safety Report 8784502 (Version 2)
Quarter: 2012Q4

REPORT INFORMATION
  Report Type: 
  Country: AR (occurrence: AR)
  Receive Date: 20120913
  Receipt Date: 20121114
  Transmission Date: 20130627
  Serious: Yes (Hospitalization, Other)
  Sender: FDA-Public Use
  Company Number: AR-AMGEN-ARGSP2012056843

PATIENT
  Age: 38 Year
  Sex: Female

DRUGS (2)
  1. ENBREL [Suspect]
     Indication: RHEUMATOID ARTHRITIS
     Dosage: 25 mg, weekly
     Route: 058
     Dates: start: 20070604, end: 2008
  2. T4 [Concomitant]
     Dosage: UNK

REACTIONS (1)
  - Systemic lupus erythematosus [Recovering/Resolving]
